FAERS Safety Report 8780061 (Version 1)
Quarter: 2012Q4

REPORT INFORMATION
  Report Type: 
  Country: US (occurrence: US)
  Receive Date: 20120912
  Receipt Date: 20120912
  Transmission Date: 20130627
  Serious: No
  Sender: FDA-Public Use
  Company Number: US-VERTEX PHARMACEUTICAL INC.-AE-2012-001906

PATIENT
  Age: 62 Year
  Sex: Male
  Weight: 71.66 kg

DRUGS (5)
  1. INCIVEK [Suspect]
     Indication: HEPATITIS C
     Dosage: 750 mg, tid
     Route: 048
     Dates: start: 20110904, end: 20111126
  2. PEGINTERFERON [Concomitant]
     Indication: HEPATITIS C
     Dosage: 180 ?g, UNK
     Route: 058
     Dates: start: 20110904, end: 20120423
  3. RIBAVIRIN [Concomitant]
     Indication: HEPATITIS C
     Dosage: 600 mg, UNK
     Route: 048
     Dates: start: 20110904, end: 20120423
  4. XANAX [Concomitant]
     Indication: ANXIETY
     Route: 048
  5. NORVASC [Concomitant]
     Indication: ANXIETY
     Route: 048

REACTIONS (5)
  - Neutrophil count decreased [Not Recovered/Not Resolved]
  - Malaise [Recovered/Resolved]
  - Rash [Recovered/Resolved]
  - Anaemia [Recovered/Resolved]
  - Platelet count decreased [Not Recovered/Not Resolved]
